FAERS Safety Report 4464151-8 (Version None)
Quarter: 2004Q3

REPORT INFORMATION
  Report Type: 
  Country: None (occurrence: None)
  Receive Date: 20040929
  Receipt Date: 20040929
  Transmission Date: 20050211
  Serious: Yes (Life-Threatening, Hospitalization)
  Sender: FDA-Public Use
  Company Number: None

PATIENT
  Age: 46 Year
  Sex: Male

DRUGS (7)
  1. IRESSA [Suspect]
     Indication: NEOPLASM RECURRENCE
     Dosage: 250 MG QD ORAL
     Route: 048
     Dates: start: 20040505, end: 20040510
  2. IRESSA [Suspect]
     Indication: SQUAMOUS CELL CARCINOMA
     Dosage: 250 MG QD ORAL
     Route: 048
     Dates: start: 20040505, end: 20040510
  3. SYNTHROID [Concomitant]
  4. PRILOSEC [Concomitant]
  5. ROCALTROL [Concomitant]
  6. XANAX [Concomitant]
  7. MAGTRATE [Concomitant]

REACTIONS (8)
  - ARTERIAL RUPTURE [None]
  - EXSANGUINATION [None]
  - HAEMORRHAGE [None]
  - HAEMORRHAGIC STROKE [None]
  - IATROGENIC INJURY [None]
  - METASTASIS [None]
  - SURGICAL PROCEDURE REPEATED [None]
  - VASCULAR NEOPLASM [None]
